FAERS Safety Report 7657598-X (Version None)
Quarter: 2011Q3

REPORT INFORMATION
  Report Type: 
  Country: None (occurrence: None)
  Receive Date: 20110804
  Receipt Date: 20110802
  Transmission Date: 20111222
  Serious: Yes (Other)
  Sender: FDA-Public Use
  Company Number: US-ABBOTT-11P-163-0843534-00

PATIENT
  Sex: Female
  Weight: 81.72 kg

DRUGS (6)
  1. HYDROCHLOROTHIAZIDE [Concomitant]
     Indication: FLUID RETENTION
  2. ZOLOFT [Concomitant]
     Indication: DEPRESSION
  3. SINGULAIR [Concomitant]
     Indication: ASTHMA
  4. METHOTREXATE [Concomitant]
     Indication: RHEUMATOID ARTHRITIS
  5. LOTREL [Concomitant]
     Indication: HYPERTENSION
  6. HUMIRA [Suspect]
     Indication: RHEUMATOID ARTHRITIS
     Dates: start: 20100401

REACTIONS (2)
  - BUNION [None]
  - MUSCULOSKELETAL STIFFNESS [None]
